FAERS Safety Report 8885494 (Version 2)
Quarter: 2014Q2

REPORT INFORMATION
  Report Type: Spontaneous
  Country: US (occurrence: US)
  Receive Date: 20121105
  Receipt Date: 20131018
  Transmission Date: 20141212
  Serious: Yes (Other)
  Sender: FDA-Public Use
  Company Number: US-PFIZER INC-2012273496

PATIENT
  Age: 43 Year
  Sex: Male
  Weight: 122 kg

DRUGS (1)
  1. ADVIL PM [Suspect]
     Indication: SLEEP DISORDER
     Dosage: UNK, DAILY
     Dates: start: 20121031

REACTIONS (1)
  - Tardive dyskinesia [Not Recovered/Not Resolved]
